FAERS Safety Report 8393447-2 (Version None)
Quarter: 2012Q2

REPORT INFORMATION
  Report Type: 
  Country: None (occurrence: None)
  Receive Date: 20120529
  Receipt Date: 20120514
  Transmission Date: 20120825
  Serious: Yes (Other)
  Sender: FDA-Public Use
  Company Number: CHPA2012US011015

PATIENT
  Age: 84 Year
  Sex: Male

DRUGS (7)
  1. HYDROCODONE BITARTRATE [Concomitant]
  2. VICODIN [Suspect]
     Dosage: UNK, UNK
     Route: 048
  3. LEVOTHYROXINE SODIUM [Concomitant]
  4. LISINOPRIL [Concomitant]
  5. EXCEDRIN EXTRA STRENGTH TABLETS [Suspect]
     Indication: PAIN
     Dosage: 1 DF, Q5H
     Route: 048
     Dates: start: 19440101
  6. ROSUVASTATIN [Concomitant]
  7. OMEPRAZOLE [Concomitant]

REACTIONS (5)
  - ARTHROPATHY [None]
  - INCORRECT DRUG ADMINISTRATION DURATION [None]
  - UNDERDOSE [None]
  - WRONG TECHNIQUE IN DRUG USAGE PROCESS [None]
  - DRUG ADMINISTRATION ERROR [None]
